FAERS Safety Report 7215217-0 (Version None)
Quarter: 2011Q1

REPORT INFORMATION
  Report Type: 
  Country: None (occurrence: None)
  Receive Date: 20110105
  Receipt Date: 20110105
  Transmission Date: 20110831
  Serious: Yes (Hospitalization)
  Sender: FDA-Public Use
  Company Number: None

PATIENT
  Sex: Female

DRUGS (1)
  1. MAGNEVIST [Suspect]
     Indication: NUCLEAR MAGNETIC RESONANCE IMAGING BRAIN
     Dosage: ONCE IV
     Route: 042
     Dates: start: 20100908, end: 20100908

REACTIONS (5)
  - DYSPNOEA [None]
  - CHEST DISCOMFORT [None]
  - SKIN WARM [None]
  - DRY SKIN [None]
  - PALLOR [None]
